FAERS Safety Report 4847190-4 (Version None)
Quarter: 2005Q4

REPORT INFORMATION
  Report Type: 
  Country: None (occurrence: None)
  Receive Date: 20051205
  Receipt Date: 20051122
  Transmission Date: 20060501
  Serious: Yes (Hospitalization, Other)
  Sender: FDA-Public Use
  Company Number: S05-USA-03744-01

PATIENT
  Age: 76 Year
  Sex: Female
  Weight: 46.7205 kg

DRUGS (14)
  1. LEXAPRO [Suspect]
     Indication: DEPRESSION
     Dosage: 10 MG QD PO
     Route: 048
     Dates: start: 20050713, end: 20050723
  2. ANGIOTENSIN RECEPTOR BLOCKER [Concomitant]
  3. ADVAIR DISKUS 250/50 [Concomitant]
  4. ATROVENT [Concomitant]
  5. DIOVAN [Concomitant]
  6. ACIPHEX [Concomitant]
  7. LIPITOR [Concomitant]
  8. NIASPAN [Concomitant]
  9. ASPIRIN [Concomitant]
  10. MYCOBUTIN [Concomitant]
  11. BIAXIN [Concomitant]
  12. ETHAMBUTOL [Concomitant]
  13. AMBIEN [Concomitant]
  14. XANAX [Concomitant]

REACTIONS (1)
  - HYPONATRAEMIA [None]
